FAERS Safety Report 4443620-0 (Version None)
Quarter: 2004Q3

REPORT INFORMATION
  Report Type: 
  Country: None (occurrence: None)
  Receive Date: 20040903
  Receipt Date: 20040903
  Transmission Date: 20050211
  Serious: Yes (Hospitalization)
  Sender: FDA-Public Use
  Company Number: None

PATIENT
  Age: 87 Year
  Sex: Male
  Weight: 73 kg

DRUGS (1)
  1. RITUXAN [Suspect]
     Indication: LYMPHOMA
     Dosage: INTRAVENOUS
     Route: 042
     Dates: start: 20040806, end: 20040806

REACTIONS (3)
  - BODY TEMPERATURE INCREASED [None]
  - CHILLS [None]
  - DYSPNOEA [None]
